FAERS Safety Report 5012123-7 (Version None)
Quarter: 2006Q2

REPORT INFORMATION
  Report Type: 
  Country: None (occurrence: None)
  Receive Date: 20060525
  Receipt Date: 20060525
  Transmission Date: 20061013
  Serious: Yes (Hospitalization)
  Sender: FDA-Public Use
  Company Number: None

PATIENT
  Age: 74 Year
  Sex: Male
  Weight: 84 kg

DRUGS (2)
  1. SPIRONOLACTONE 25MG TAB [Suspect]
     Indication: CARDIAC FAILURE CONGESTIVE
     Dosage: 25 MG Q DAY[MEDICATION STARTED 3 WEEKS PRIOR]
  2. SPIRONOLACTONE 25MG TAB [Suspect]
     Indication: CARDIOMYOPATHY
     Dosage: 25 MG Q DAY[MEDICATION STARTED 3 WEEKS PRIOR]

REACTIONS (5)
  - BLOOD CREATININE INCREASED [None]
  - BLOOD PRESSURE DECREASED [None]
  - BLOOD UREA INCREASED [None]
  - POLYURIA [None]
  - RENAL IMPAIRMENT [None]
